FAERS Safety Report 9161537 (Version 2)
Quarter: 2013Q2

REPORT INFORMATION
  Report Type: Spontaneous
  Country: IT (occurrence: IT)
  Receive Date: 20121224
  Receipt Date: 20130625
  Transmission Date: 20140414
  Serious: Yes (Other)
  Sender: FDA-Public Use
  Company Number: IT-BRACCO-002206

PATIENT
  Age: 66 Year
  Sex: Male
  Weight: 72 kg

DRUGS (4)
  1. IOPAMIRO [Suspect]
     Indication: ACUTE MYOCARDIAL INFARCTION
     Route: 042
     Dates: start: 20121211, end: 20121211
  2. IOPAMIRO [Suspect]
     Indication: ARTERIOGRAM CORONARY
     Route: 042
     Dates: start: 20121211, end: 20121211
  3. ACETYLSALICYLIC ACID [Concomitant]
  4. CLOPIDOGREL [Concomitant]

REACTIONS (5)
  - Medication error [Recovered/Resolved]
  - Chest pain [Recovered/Resolved]
  - Electrocardiogram ST segment elevation [Recovered/Resolved]
  - Hypotension [Recovered/Resolved]
  - Cardiac arrest [Recovered/Resolved]
